FAERS Safety Report 7864261-9 (Version None)
Quarter: 2011Q4

REPORT INFORMATION
  Report Type: 
  Country: None (occurrence: None)
  Receive Date: 20111028
  Receipt Date: 20111013
  Transmission Date: 20120403
  Serious: Yes (Hospitalization)
  Sender: FDA-Public Use
  Company Number: ES-COVIDIEN/TYCO HEALTHCARE/MALLINCKRODT-T201102267

PATIENT
  Age: 54 Year
  Sex: Male

DRUGS (7)
  1. FENTANYL-100 [Interacting]
     Indication: CANCER PAIN
     Dosage: 400 ?G, PRN
     Route: 048
  2. FENTANYL-100 [Suspect]
     Indication: CANCER PAIN
     Dosage: 50 UG/HR, 1 IN 72 HOURS
     Route: 062
  3. ERLOTINIB HYDROCHLORIDE [Interacting]
     Indication: PRODUCT USED FOR UNKNOWN INDICATION
     Dosage: UNK
  4. METAMIZOL                          /00039502/ [Concomitant]
     Indication: CANCER PAIN
     Dosage: 575 MG, 1 IN 8 HOURS
  5. OMEPRAZOLE [Concomitant]
     Indication: CANCER PAIN
     Dosage: 20 MG, 1 IN 24 HOURS
  6. IBUPROFEN [Concomitant]
     Indication: CANCER PAIN
     Dosage: 600 MG, 1 IN 8 HOURS
  7. FENTANYL-100 [Suspect]
     Dosage: 25 UG/HR, 1 IN 72 HOURS
     Route: 062

REACTIONS (6)
  - DISEASE PROGRESSION [None]
  - INADEQUATE ANALGESIA [None]
  - VOMITING [None]
  - DRUG INTERACTION [None]
  - NAUSEA [None]
  - SOMNOLENCE [None]
